FAERS Safety Report 9116314 (Version 2)
Quarter: 2013Q1

REPORT INFORMATION
  Report Type: Report from Study
  Country: AR (occurrence: AR)
  Receive Date: 20130225
  Receipt Date: 20130311
  Transmission Date: 20140127
  Serious: Yes (Hospitalization, Other)
  Sender: FDA-Public Use
  Company Number: AR-ABBOTT-13P-007-1051840-00

PATIENT
  Age: 49 None
  Sex: Female

DRUGS (1)
  1. HUMIRA [Suspect]
     Indication: PSORIATIC ARTHROPATHY
     Dates: start: 20110101, end: 20130210

REACTIONS (2)
  - Joint dislocation [Recovered/Resolved]
  - Osteomyelitis viral [Recovered/Resolved]
